FAERS Safety Report 6904798-X (Version None)
Quarter: 2010Q3

REPORT INFORMATION
  Report Type: 
  Country: None (occurrence: None)
  Receive Date: 20100804
  Receipt Date: 20090713
  Transmission Date: 20110219
  Serious: No
  Sender: FDA-Public Use
  Company Number: US-PFIZER INC-2009216728

PATIENT
  Sex: Female

DRUGS (1)
  1. LYRICA [Suspect]
     Indication: MYALGIA
     Dosage: UNK
     Dates: start: 20080101, end: 20090301

REACTIONS (2)
  - VISUAL IMPAIRMENT [None]
  - WEIGHT INCREASED [None]
